FAERS Safety Report 5891612-7 (Version None)
Quarter: 2008Q3

REPORT INFORMATION
  Report Type: 
  Country: None (occurrence: None)
  Receive Date: 20080922
  Receipt Date: 20080911
  Transmission Date: 20090109
  Serious: Yes (Hospitalization)
  Sender: FDA-Public Use
  Company Number: US-PFIZER INC-2006032093

PATIENT
  Sex: Male
  Weight: 81.2 kg

DRUGS (6)
  1. SUTENT [Suspect]
     Indication: GASTROINTESTINAL STROMAL TUMOUR
     Route: 048
     Dates: start: 20051202, end: 20060310
  2. PLAVIX [Concomitant]
     Route: 048
     Dates: start: 20050503
  3. CARTIA XT [Concomitant]
     Route: 048
     Dates: start: 20040101
  4. METOPROLOL TARTRATE [Concomitant]
     Route: 048
     Dates: start: 19960101
  5. ACETYLSALICYLIC ACID SRT [Concomitant]
     Route: 048
     Dates: start: 20040101
  6. NEXIUM [Concomitant]
     Route: 048
     Dates: start: 20051212

REACTIONS (1)
  - TRANSIENT ISCHAEMIC ATTACK [None]
